FAERS Safety Report 15722393 (Version 1)
Quarter: 2018Q4

REPORT INFORMATION
  Report Type: Spontaneous
  Country: US (occurrence: US)
  Receive Date: 20181213
  Receipt Date: 20181213
  Transmission Date: 20190205
  Serious: Yes (Other)
  Sender: FDA-Public Use
  Company Number: None

PATIENT
  Age: 61 Year
  Sex: Male
  Weight: 79.83 kg

DRUGS (8)
  1. GABAPENTIN. [Concomitant]
     Active Substance: GABAPENTIN
  2. CIALIS [Concomitant]
     Active Substance: TADALAFIL
  3. VERAPAMIL [Concomitant]
     Active Substance: VERAPAMIL HYDROCHLORIDE
  4. OXYBUTININ [Concomitant]
     Active Substance: OXYBUTYNIN
  5. GEMFIBROZIL. [Concomitant]
     Active Substance: GEMFIBROZIL
  6. PREDNISONE. [Concomitant]
     Active Substance: PREDNISONE
  7. COLCHICINE. [Concomitant]
     Active Substance: COLCHICINE
  8. ABIRATERONE 250MG [Suspect]
     Active Substance: ABIRATERONE
     Indication: PROSTATE CANCER
     Route: 048
     Dates: start: 20161012, end: 20181213

REACTIONS (2)
  - Intracranial mass [None]
  - Visual impairment [None]

NARRATIVE: CASE EVENT DATE: 20181213
